FAERS Safety Report 5487179-8 (Version None)
Quarter: 2007Q3

REPORT INFORMATION
  Report Type: 
  Country: None (occurrence: None)
  Receive Date: 20070925
  Receipt Date: 20070606
  Transmission Date: 20080115
  Serious: No
  Sender: FDA-Public Use
  Company Number: 2007US001309

PATIENT
  Age: 96 Year
  Sex: Female

DRUGS (9)
  1. VESICARE [Suspect]
     Indication: HYPERTONIC BLADDER
     Dosage: 5 MG, UID/QD, ORAL
     Route: 048
     Dates: start: 20070401
  2. CELEBREX [Concomitant]
  3. CORTISONE ACETATE [Concomitant]
  4. PAXIL [Concomitant]
  5. EVISTA [Concomitant]
  6. AVALIDE [Concomitant]
  7. NEURONTIN [Concomitant]
  8. DARVOCET (DEXTROPROPOXYPHENE NAPSILATE) [Concomitant]
  9. TRUSOPT [Concomitant]

REACTIONS (4)
  - HEADACHE [None]
  - INSOMNIA [None]
  - MEDICATION ERROR [None]
  - NAUSEA [None]
